FAERS Safety Report 26140280 (Version 1)
Quarter: 2025Q4

REPORT INFORMATION
  Report Type: Report from Study
  Country: GB (occurrence: GB)
  Receive Date: 20251210
  Receipt Date: 20251210
  Transmission Date: 20260118
  Serious: Yes (Other)
  Sender: AMGEN
  Company Number: GB-AMGEN-GBRSL2025239553

PATIENT
  Age: 61 Year
  Sex: Female

DRUGS (1)
  1. USTEKINUMAB [Suspect]
     Active Substance: USTEKINUMAB
     Indication: Crohn^s disease
     Dosage: 90 MILLIGRAM [90MG, ONE PRE-FILLED PEN EVERY TWELVE WEEKS]]
     Route: 065
     Dates: start: 20250611

REACTIONS (2)
  - Crohn^s disease [Unknown]
  - Device difficult to use [Unknown]
